FAERS Safety Report 5444377-7 (Version None)
Quarter: 2007Q3

REPORT INFORMATION
  Report Type: 
  Country: None (occurrence: None)
  Receive Date: 20070906
  Receipt Date: 20070827
  Transmission Date: 20080115
  Serious: Yes (Life-Threatening, Hospitalization)
  Sender: FDA-Public Use
  Company Number: PHEH2007US04903

PATIENT
  Age: 65 Year
  Sex: Male
  Weight: 149.21 kg

DRUGS (14)
  1. ZELNORM [Suspect]
     Indication: CONSTIPATION
     Dosage: UNK, UNK
     Route: 048
     Dates: start: 20050614
  2. ZELNORM [Suspect]
     Dosage: 6 MG, QD
     Route: 048
  3. NITRO-BID [Concomitant]
     Dosage: UNK, PRN
     Route: 060
  4. EFFEXOR XR [Concomitant]
     Dosage: 150 MG, UNK
  5. PULMICORT RESPULES [Concomitant]
  6. VESICARE [Concomitant]
     Dosage: 10 MG, QD
  7. ALBUTEROL [Concomitant]
  8. ETODOLAC [Concomitant]
     Dosage: 400 MG, QD
  9. MIRAPEX [Concomitant]
     Dosage: 0.5 MG, QD
  10. CARBIDOPA W/LEVODOPA [Concomitant]
     Indication: PARKINSON'S DISEASE
  11. VERAPAMIL [Concomitant]
     Indication: ATRIAL FIBRILLATION
  12. ALLOPURINOL [Concomitant]
     Indication: GOUT
  13. LOVASTATIN [Concomitant]
  14. INDOMETHACIN [Concomitant]

REACTIONS (26)
  - ACUTE CORONARY SYNDROME [None]
  - ACUTE MYOCARDIAL INFARCTION [None]
  - ANGINA UNSTABLE [None]
  - ATRIAL FIBRILLATION [None]
  - ATRIAL FLUTTER [None]
  - BLOOD CREATINE PHOSPHOKINASE INCREASED [None]
  - BLOOD CREATINE PHOSPHOKINASE MB INCREASED [None]
  - BLOOD GLUCOSE INCREASED [None]
  - BLOOD PRESSURE INCREASED [None]
  - CATHETERISATION CARDIAC ABNORMAL [None]
  - CHEST DISCOMFORT [None]
  - CHEST PAIN [None]
  - CORONARY ARTERY BYPASS [None]
  - CORONARY ARTERY DISEASE [None]
  - CORONARY ARTERY OCCLUSION [None]
  - EJECTION FRACTION DECREASED [None]
  - ELECTROCARDIOGRAM QRS COMPLEX ABNORMAL [None]
  - ELECTROCARDIOGRAM QT PROLONGED [None]
  - ELECTROCARDIOGRAM ST SEGMENT DEPRESSION [None]
  - HAEMATOCRIT DECREASED [None]
  - HAEMOGLOBIN DECREASED [None]
  - MECHANICAL VENTILATION [None]
  - NAUSEA [None]
  - OEDEMA PERIPHERAL [None]
  - POST PROCEDURAL HAEMORRHAGE [None]
  - TROPONIN I INCREASED [None]
